FAERS Safety Report 5701703-9 (Version None)
Quarter: 2008Q2

REPORT INFORMATION
  Report Type: 
  Country: None (occurrence: None)
  Receive Date: 20080409
  Receipt Date: 20080409
  Transmission Date: 20081010
  Serious: No
  Sender: FDA-Public Use
  Company Number: None

PATIENT
  Age: 48 Year
  Sex: Female
  Weight: 70.3075 kg

DRUGS (1)
  1. ABILIFY [Suspect]
     Indication: BIPOLAR DISORDER

REACTIONS (18)
  - BLOOD URINE PRESENT [None]
  - BRUXISM [None]
  - CLUMSINESS [None]
  - DIZZINESS [None]
  - DRY MOUTH [None]
  - DYSPHAGIA [None]
  - DYSPHEMIA [None]
  - DYSPNOEA [None]
  - EATING DISORDER [None]
  - GINGIVAL DISORDER [None]
  - INFLUENZA [None]
  - ORAL PAIN [None]
  - SPEECH DISORDER [None]
  - TARDIVE DYSKINESIA [None]
  - TONGUE DISORDER [None]
  - VISION BLURRED [None]
  - VISUAL ACUITY REDUCED [None]
  - WEIGHT DECREASED [None]
